FAERS Safety Report 13658036 (Version 2)
Quarter: 2017Q2

REPORT INFORMATION
  Report Type: Report from Study
  Country: None (occurrence: BE)
  Receive Date: 20170616
  Receipt Date: 20170622
  Transmission Date: 20170830
  Serious: Yes (Hospitalization)
  Sender: FDA-Public Use
  Company Number: BE-ABBVIE-17K-013-2009062-00

PATIENT
  Sex: Female

DRUGS (3)
  1. DUODOPA [Suspect]
     Active Substance: CARBIDOPA\LEVODOPA
     Dosage: MD= 4.5 ML ; CD= 3.2 ML/H DURING 16 HRS; EDA= 1.5 ML
     Route: 050
     Dates: start: 20170119, end: 20170502
  2. DUODOPA [Suspect]
     Active Substance: CARBIDOPA\LEVODOPA
     Indication: PARKINSON^S DISEASE
     Dosage: MD= 5 ML; CD= 3 ML/H DURING 16 HRS; EDA= 1.5 ML
     Route: 050
     Dates: start: 20170116, end: 20170119
  3. DUODOPA [Suspect]
     Active Substance: CARBIDOPA\LEVODOPA
     Dosage: MD= 4.5 ML; CD= 3.4 ML/H DURING 16 HRS; EDA= 2 ML
     Route: 050
     Dates: start: 20170502

REACTIONS (2)
  - Joint dislocation [Unknown]
  - Fall [Recovered/Resolved]

NARRATIVE: CASE EVENT DATE: 2017
